FAERS Safety Report 17555172 (Version 1)
Quarter: 2020Q1

REPORT INFORMATION
  Report Type: Spontaneous
  Country: US (occurrence: US)
  Receive Date: 20200317
  Receipt Date: 20200317
  Transmission Date: 20200409
  Serious: Yes (Hospitalization)
  Sender: FDA-Public Use
  Company Number: None

PATIENT
  Age: 63 Year
  Sex: Female

DRUGS (2)
  1. BIMATOPROST. [Concomitant]
     Active Substance: BIMATOPROST
  2. BENLYSTA [Suspect]
     Active Substance: BELIMUMAB
     Indication: MYALGIA
     Dosage: ?          OTHER FREQUENCY:WEEKLY;?
     Route: 058
     Dates: start: 20190429

REACTIONS (4)
  - Pelvic fracture [None]
  - Therapy cessation [None]
  - Paraesthesia [None]
  - Burning sensation [None]

NARRATIVE: CASE EVENT DATE: 20200123
